FAERS Safety Report 6867137-9 (Version None)
Quarter: 2010Q3

REPORT INFORMATION
  Report Type: 
  Country: None (occurrence: None)
  Receive Date: 20100722
  Receipt Date: 20100716
  Transmission Date: 20110219
  Serious: Yes (Other)
  Sender: FDA-Public Use
  Company Number: A0871532A

PATIENT
  Age: 48 Year
  Sex: Male

DRUGS (2)
  1. AVANDIA [Suspect]
     Dosage: 4MG TWICE PER DAY
     Route: 048
     Dates: start: 20050301, end: 20060101
  2. AVANDAMET [Suspect]
     Route: 048
     Dates: start: 20040101, end: 20060101

REACTIONS (1)
  - ANKLE FRACTURE [None]
